FAERS Safety Report 9470705 (Version 2)
Quarter: 2013Q3

REPORT INFORMATION
  Report Type: Spontaneous
  Country: US (occurrence: US)
  Receive Date: 20130822
  Receipt Date: 20130905
  Transmission Date: 20140515
  Serious: Yes (Other)
  Sender: FDA-Public Use
  Company Number: US-TEVA-427634USA

PATIENT
  Age: 41 Year
  Sex: Female

DRUGS (1)
  1. PHENTERMINE [Suspect]
     Route: 065

REACTIONS (1)
  - Cerebrovascular accident [Unknown]
